FAERS Safety Report 10646050 (Version 2)
Quarter: 2015Q1

REPORT INFORMATION
  Report Type: Spontaneous
  Country: SE (occurrence: SE)
  Receive Date: 20141211
  Receipt Date: 20150323
  Transmission Date: 20150720
  Serious: Yes (Other)
  Sender: FDA-Public Use
  Company Number: SE-ASTELLAS-2014US019306

PATIENT
  Sex: Female

DRUGS (1)
  1. BETMIGA [Suspect]
     Active Substance: MIRABEGRON
     Indication: PRODUCT USED FOR UNKNOWN INDICATION
     Dosage: UNK, UNKNOWN FREQ.
     Route: 065
     Dates: end: 20140514

REACTIONS (3)
  - Dysgeusia [Unknown]
  - Anosmia [Unknown]
  - Diabetes mellitus [Unknown]
